FAERS Safety Report 6618864-X (Version None)
Quarter: 2010Q1

REPORT INFORMATION
  Report Type: 
  Country: None (occurrence: None)
  Receive Date: 20100305
  Receipt Date: 20100305
  Transmission Date: 20100710
  Serious: No
  Sender: FDA-Public Use
  Company Number: None

PATIENT
  Age: 54 Year
  Sex: Female

DRUGS (1)
  1. NEXIUM [Suspect]
     Dosage: 1 CAP TWICE DAILY

REACTIONS (2)
  - CAPSULE ISSUE [None]
  - GASTROOESOPHAGEAL REFLUX DISEASE [None]
